FAERS Safety Report 15328020 (Version 2)
Quarter: 2020Q1

REPORT INFORMATION
  Report Type: Report from Study
  Country: KR (occurrence: KR)
  Receive Date: 20180828
  Receipt Date: 20200320
  Transmission Date: 20200409
  Serious: Yes (Hospitalization)
  Sender: FDA-Public Use
  Company Number: KR-AMGEN-KORNI2018117529

PATIENT
  Age: 55 Year
  Sex: Male
  Weight: 72.8 kg

DRUGS (32)
  1. CARFILZOMIB [Suspect]
     Active Substance: CARFILZOMIB
     Indication: PLASMA CELL MYELOMA
     Dosage: 101 MILLIGRAM
     Route: 042
     Dates: start: 20180427
  2. CAVID [Concomitant]
     Dosage: 1 UNK
     Dates: start: 20180727
  3. FEXORIN [Concomitant]
     Dosage: 40 MILLIGRAM
     Dates: start: 20180206, end: 20180814
  4. RENAMEZIN [Concomitant]
     Dosage: 1 UNK, UNK
     Dates: start: 20180731
  5. FOLIC ACID. [Concomitant]
     Active Substance: FOLIC ACID
     Dosage: 1 MILLIGRAM
     Dates: start: 20170904
  6. VACRAX [Concomitant]
     Dosage: 400 MILLIGRAM
     Dates: start: 20180427
  7. MEROPEN [Concomitant]
     Active Substance: MEROPENEM
     Dosage: 1 GRAM
     Dates: start: 20180602, end: 20180608
  8. ACTOS [Concomitant]
     Active Substance: PIOGLITAZONE HYDROCHLORIDE
     Dosage: 30 MILLIGRAM
     Dates: start: 20180607, end: 20180608
  9. SYNATURA [Concomitant]
     Dosage: 15 MILLILITER
     Dates: start: 20180531, end: 20180605
  10. URUSA [Concomitant]
     Active Substance: URSODIOL
     Dosage: 100 MILLIGRAM
     Dates: start: 20180712, end: 20180718
  11. TASNA [Concomitant]
     Dosage: 1000 MILLIGRAM
     Dates: start: 20180804, end: 20180809
  12. NEXIUM [Concomitant]
     Active Substance: ESOMEPRAZOLE MAGNESIUM
     Dosage: 20 MILLIGRAM
     Dates: start: 20180727
  13. DIAMICRON [Concomitant]
     Active Substance: GLICLAZIDE
     Dosage: 1 UNK, UNK
     Dates: start: 20180605, end: 20180608
  14. LANTUS [Concomitant]
     Active Substance: INSULIN GLARGINE
     Dosage: 8 UNK
     Dates: start: 20180601
  15. SUGANON [Concomitant]
     Active Substance: EVOGLIPTIN TARTRATE
     Dosage: 1 UNK, UNK
     Dates: start: 20180731
  16. CRAVIT [Concomitant]
     Active Substance: LEVOFLOXACIN
     Dosage: 500 MILLIGRAM
     Dates: start: 20180531, end: 20180615
  17. MUTERAN [Concomitant]
     Active Substance: ACETYLCYSTEINE
     Dosage: 200 MILLIGRAM
     Dates: start: 20180601, end: 20180605
  18. ROSUVAMIBE [Concomitant]
     Dosage: 1 UNK, UNK
     Dates: start: 20170807
  19. DENOGAN [Concomitant]
     Active Substance: PROPACETAMOL HYDROCHLORIDE
     Dosage: 1 GRAM
     Dates: start: 20180531, end: 20180603
  20. VITAMIN D3 B.O.N. [Concomitant]
     Dosage: 5 MILLIGRAM
     Dates: start: 20180716, end: 20180716
  21. TARGIN [Concomitant]
     Active Substance: NALOXONE HYDROCHLORIDE\OXYCODONE HYDROCHLORIDE
     Dosage: 1 UNK
     Dates: start: 20151107
  22. CODEINE PHOSPHATE [Concomitant]
     Active Substance: CODEINE PHOSPHATE
     Dosage: 1 UNK
     Dates: start: 20180606, end: 20180615
  23. LYRICA [Concomitant]
     Active Substance: PREGABALIN
     Dosage: 150 MILLIGRAM
     Dates: start: 20151208, end: 20180730
  24. ZOLEDRONIC ACID [Concomitant]
     Active Substance: ZOLEDRONIC ACID
     Dosage: 5 MILLIGRAM
     Dates: start: 20180716, end: 20180716
  25. KALIMATE [Concomitant]
     Active Substance: CALCIUM POLYSTYRENE SULFONATE
     Dosage: 10 GRAM
     Dates: start: 20180524, end: 20180525
  26. SEPTRIN [Concomitant]
     Active Substance: SULFAMETHOXAZOLE\TRIMETHOPRIM
     Dosage: 1 UNK
     Dates: start: 20180427, end: 20180913
  27. ERDOS [Concomitant]
     Active Substance: ERDOSTEINE
     Dosage: 300 MILLIGRAM
     Dates: start: 20180531, end: 20180615
  28. MACPERAN [Concomitant]
     Active Substance: METOCLOPRAMIDE HYDROCHLORIDE
     Dosage: 5-10 MILLIGRAM
     Dates: start: 20180629, end: 20180709
  29. CALCIUM CARBONATE. [Concomitant]
     Active Substance: CALCIUM CARBONATE
     Dosage: 500 MILLIGRAM
     Dates: start: 20180803, end: 20180809
  30. FEROBA YOU [Concomitant]
     Dosage: 1 UNK
     Dates: start: 20170904
  31. TRAJENTA [Concomitant]
     Active Substance: LINAGLIPTIN
     Dosage: 5 MILLIGRAM
     Dates: start: 20150909, end: 20180607
  32. DEXAMETHASONE. [Concomitant]
     Active Substance: DEXAMETHASONE
     Dosage: 20 MILLIGRAM
     Dates: start: 20180525, end: 20180824

REACTIONS (1)
  - Hypophagia [Recovered/Resolved]

NARRATIVE: CASE EVENT DATE: 20180811
